FAERS Safety Report 9649288 (Version 2)
Quarter: 2013Q4

REPORT INFORMATION
  Report Type: Spontaneous
  Country: DE (occurrence: DE)
  Receive Date: 20131028
  Receipt Date: 20131115
  Transmission Date: 20140711
  Serious: Yes (Life-Threatening, Hospitalization, Disabling)
  Sender: FDA-Public Use
  Company Number: DE-GLAXOSMITHKLINE-D0081596A

PATIENT
  Age: 4 Year
  Sex: Female
  Weight: 14 kg

DRUGS (7)
  1. ATRIANCE [Suspect]
     Indication: T-CELL TYPE ACUTE LEUKAEMIA
     Dosage: 416MG PER DAY
     Route: 042
     Dates: start: 20130910, end: 20130914
  2. CYCLOPHOSPHAMIDE [Concomitant]
     Indication: T-CELL TYPE ACUTE LEUKAEMIA
     Dosage: 218MG PER DAY
     Route: 042
     Dates: start: 20130910, end: 20130914
  3. ETOPOSID [Concomitant]
     Indication: T-CELL TYPE ACUTE LEUKAEMIA
     Dosage: 64MG PER DAY
     Route: 042
     Dates: start: 20130910, end: 20130914
  4. AMBISOME [Concomitant]
     Indication: ASPERGILLUS INFECTION
     Dosage: 40MG PER DAY
     Route: 042
  5. METHOTREXATE [Concomitant]
     Indication: T-CELL TYPE ACUTE LEUKAEMIA
     Dosage: 12MG PER DAY
     Route: 037
     Dates: start: 20130909, end: 20130909
  6. ARA-C [Concomitant]
     Indication: T-CELL TYPE ACUTE LEUKAEMIA
     Dosage: 30MG PER DAY
     Route: 037
     Dates: start: 20130909, end: 20130909
  7. PREDNISON [Concomitant]
     Indication: T-CELL TYPE ACUTE LEUKAEMIA
     Dosage: 10MG PER DAY
     Route: 037
     Dates: start: 20130909, end: 20130909

REACTIONS (13)
  - Polyneuropathy [Not Recovered/Not Resolved]
  - Somnolence [Not Recovered/Not Resolved]
  - Neurological symptom [Not Recovered/Not Resolved]
  - Radiculitis [Not Recovered/Not Resolved]
  - Leukoencephalopathy [Not Recovered/Not Resolved]
  - Convulsion [Recovering/Resolving]
  - Supraventricular tachycardia [Recovered/Resolved]
  - Central nervous system necrosis [Unknown]
  - Depressed level of consciousness [Unknown]
  - Quadriplegia [Unknown]
  - Diaphragmatic paralysis [Unknown]
  - Mechanical ventilation [Unknown]
  - Pain in extremity [Unknown]
